FAERS Safety Report 10247225 (Version 1)
Quarter: 2014Q1

REPORT INFORMATION
  Report Type: Spontaneous
  Country: US (occurrence: None)
  Receive Date: 20140306
  Receipt Date: 20140306
  Transmission Date: 20141002
  Serious: Yes (Disabling, Other)
  Sender: FDA-Public Use
  Company Number: 163-21880-13030822

PATIENT
  Age: 66 Year
  Sex: Male

DRUGS (1)
  1. REVLIMID (LENALIDOMIDE) (15 MILLIGRAM, CAPSULES) [Suspect]
     Indication: PLASMA CELL MYELOMA
     Route: 048
     Dates: start: 201205, end: 201212

REACTIONS (6)
  - Hypersensitivity [None]
  - Rash [None]
  - Rash pruritic [None]
  - Fungal infection [None]
  - Dizziness [None]
  - Vision blurred [None]
